FAERS Safety Report 9036091 (Version 1)
Quarter: 2013Q1

REPORT INFORMATION
  Report Type: Report from Study
  Country: US (occurrence: US)
  Receive Date: 20130129
  Receipt Date: 20130129
  Transmission Date: 20140127
  Serious: No
  Sender: FDA-Public Use
  Company Number: US-ABBOTT-12P-163-0920416-00

PATIENT
  Age: 29 Year
  Sex: Female

DRUGS (7)
  1. HUMIRA 40 MG/0.8 ML PEN [Suspect]
     Indication: CROHN^S DISEASE
     Dosage: LOADING DOSE
     Dates: start: 20120328, end: 20120328
  2. HUMIRA 40 MG/0.8 ML PEN [Suspect]
  3. LAMICTAL [Concomitant]
     Indication: BIPOLAR I DISORDER
  4. KLONOPIN [Concomitant]
     Indication: ANXIETY
  5. SAPHRIS [Concomitant]
     Indication: BIPOLAR DISORDER
  6. ULTRAM [Concomitant]
     Indication: BACK PAIN
     Dosage: UP TO 3 IN 1 D
  7. VITAMIN D [Concomitant]
     Indication: PRODUCT USED FOR UNKNOWN INDICATION

REACTIONS (1)
  - Injection site pain [Recovering/Resolving]
